FAERS Safety Report 13117155 (Version 1)
Quarter: 2017Q1

REPORT INFORMATION
  Report Type: Report from Study
  Country: BR (occurrence: BR)
  Receive Date: 20170116
  Receipt Date: 20170116
  Transmission Date: 20170428
  Serious: Yes (Other)
  Sender: FDA-Public Use
  Company Number: BR-ALEXION-A201405082

PATIENT
  Sex: Female

DRUGS (1)
  1. SOLIRIS [Suspect]
     Active Substance: ECULIZUMAB
     Indication: HAEMOLYTIC URAEMIC SYNDROME
     Dosage: UNK
     Route: 042
     Dates: start: 20140805

REACTIONS (5)
  - Condition aggravated [Unknown]
  - Blood creatinine abnormal [Unknown]
  - Anaemia [Unknown]
  - Sickle cell trait [Unknown]
  - Micturition disorder [Unknown]
